FAERS Safety Report 15834589 (Version 2)
Quarter: 2019Q1

REPORT INFORMATION
  Report Type: Spontaneous
  Country: US (occurrence: US)
  Receive Date: 20190116
  Receipt Date: 20190219
  Transmission Date: 20190417
  Serious: No
  Sender: FDA-Public Use
  Company Number: US-TEVA-2018-US-990837

PATIENT
  Age: 46 Year
  Sex: Female

DRUGS (1)
  1. MICROGESTIN [Suspect]
     Active Substance: ETHINYL ESTRADIOL\NORETHINDRONE ACETATE
     Dosage: FORM STRENGTH: 1 UNIT NOT REPORTED
     Route: 065
     Dates: start: 20181028

REACTIONS (1)
  - Menstruation delayed [Unknown]

NARRATIVE: CASE EVENT DATE: 20181128
